FAERS Safety Report 14155819 (Version 4)
Quarter: 2018Q2

REPORT INFORMATION
  Report Type: Report from Study
  Country: None (occurrence: US)
  Receive Date: 20171103
  Receipt Date: 20180508
  Transmission Date: 20180711
  Serious: Yes (Hospitalization, Other)
  Sender: FDA-Public Use
  Company Number: US-ABBVIE-17K-163-2148645-00

PATIENT
  Age: 47 Year
  Sex: Female

DRUGS (1)
  1. HUMIRA [Suspect]
     Active Substance: ADALIMUMAB
     Indication: CROHN^S DISEASE
     Route: 058

REACTIONS (11)
  - Crohn^s disease [Recovered/Resolved]
  - Eye disorder [Unknown]
  - Gastric operation [Recovering/Resolving]
  - Crohn^s disease [Not Recovered/Not Resolved]
  - Malabsorption [Unknown]
  - Headache [Not Recovered/Not Resolved]
  - Gallbladder enlargement [Recovered/Resolved]
  - Fatigue [Unknown]
  - Arthritis enteropathic [Unknown]
  - Gastric disorder [Not Recovered/Not Resolved]
  - Gallbladder hypofunction [Recovered/Resolved]

NARRATIVE: CASE EVENT DATE: 201711
